FAERS Safety Report 22966677 (Version 4)
Quarter: 2023Q4

REPORT INFORMATION
  Report Type: Spontaneous
  Country: US (occurrence: US)
  Receive Date: 20230921
  Receipt Date: 20231020
  Transmission Date: 20240109
  Serious: No
  Sender: FDA-Public Use
  Company Number: US-002147023-NVSC2023US203337

PATIENT
  Sex: Female

DRUGS (1)
  1. PROMACTA [Suspect]
     Active Substance: ELTROMBOPAG OLAMINE
     Indication: Immune thrombocytopenia
     Dosage: 50 MG, QD
     Route: 048
     Dates: start: 202308

REACTIONS (6)
  - Rhinorrhoea [Unknown]
  - Sneezing [Unknown]
  - Dry skin [Unknown]
  - Pruritus [Unknown]
  - Nasopharyngitis [Unknown]
  - Nasal congestion [Unknown]
